FAERS Safety Report 8125120-X (Version None)
Quarter: 2012Q1

REPORT INFORMATION
  Report Type: 
  Country: None (occurrence: None)
  Receive Date: 20120209
  Receipt Date: 20120125
  Transmission Date: 20120608
  Serious: Yes (Other)
  Sender: FDA-Public Use
  Company Number: PL-ROCHE-735051

PATIENT
  Sex: Male
  Weight: 91.5 kg

DRUGS (10)
  1. ACIDUM FOLICUM [Concomitant]
     Indication: RENAL FAILURE CHRONIC
     Dosage: FREQUENCY: 1X1
  2. MIRCERA [Suspect]
     Indication: RENAL FAILURE CHRONIC
     Route: 065
     Dates: start: 20100512, end: 20100824
  3. MIRCERA [Suspect]
     Route: 065
     Dates: start: 20100825, end: 20100921
  4. POLPRAZOL [Concomitant]
     Dosage: FREQUENCY: 1X1
     Route: 048
  5. MIRCERA [Suspect]
     Route: 065
     Dates: start: 20100922, end: 20101013
  6. BISOPROLOL FUMARATE [Concomitant]
     Indication: HYPERTENSION
     Dosage: FREQUENCY: 1X1
     Route: 048
  7. MIRCERA [Suspect]
     Route: 065
     Dates: start: 20100825, end: 20100921
  8. FUROSEMIDE [Concomitant]
     Indication: HYPERTENSION
     Dosage: FREQUENCY: 2X1
     Route: 048
  9. AMLOZEK [Concomitant]
     Indication: HYPERTENSION
     Dosage: FREQUENCY: 1X1
     Route: 048
  10. ALLOPURINOL [Concomitant]
     Indication: HYPERURICAEMIA
     Dosage: FREQUENCY: 1X1
     Route: 048

REACTIONS (3)
  - ANAEMIA [None]
  - PRURITUS [None]
  - RASH [None]
